FAERS Safety Report 9578760 (Version 2)
Quarter: 2013Q4

REPORT INFORMATION
  Report Type: Spontaneous
  Country: US (occurrence: US)
  Receive Date: 20131001
  Receipt Date: 20131001
  Transmission Date: 20140711
  Serious: No
  Sender: FDA-Public Use
  Company Number: US-AMGEN-USASP2013011035

PATIENT
  Sex: Male
  Weight: 63.49 kg

DRUGS (6)
  1. ENBREL [Suspect]
     Indication: JUVENILE IDIOPATHIC ARTHRITIS
     Dosage: 50 MG, QWK
     Route: 058
  2. ALLEGRA [Concomitant]
     Dosage: 180 MG, UNK
  3. FLONASE [Concomitant]
     Dosage: 0.05 %, UNK
  4. VOLTAREN                           /00372301/ [Concomitant]
     Dosage: 25 MG, UNK
  5. MULTI                              /05812401/ [Concomitant]
     Dosage: UNK
  6. VITAMIN D                          /00107901/ [Concomitant]
     Dosage: 50000 UNIT, UNK

REACTIONS (1)
  - Upper respiratory tract infection [Unknown]
